FAERS Safety Report 12238749 (Version 2)
Quarter: 2017Q2

REPORT INFORMATION
  Report Type: Spontaneous
  Country: US (occurrence: US)
  Receive Date: 20160405
  Receipt Date: 20170418
  Transmission Date: 20170830
  Serious: Yes (Death, Hospitalization)
  Sender: FDA-Public Use
  Company Number: US-TEVA-639370USA

PATIENT
  Age: 84 Year
  Sex: Male
  Weight: 63.02 kg

DRUGS (15)
  1. ALENDRONATE [Concomitant]
     Active Substance: ALENDRONATE SODIUM
     Indication: OSTEOPOROSIS
     Dates: start: 20150623
  2. FUROSEMIDE. [Concomitant]
     Active Substance: FUROSEMIDE
     Indication: OEDEMA PERIPHERAL
     Dates: start: 20150917
  3. FERROUS SULFATE. [Concomitant]
     Active Substance: FERROUS SULFATE
     Indication: SUPPLEMENTATION THERAPY
     Dates: start: 20150320
  4. HUMALOG [Concomitant]
     Active Substance: INSULIN LISPRO
     Indication: DIABETES MELLITUS
     Dates: start: 20150419
  5. METFORMIN [Concomitant]
     Active Substance: METFORMIN HYDROCHLORIDE
     Indication: DIABETES MELLITUS
     Dates: start: 20150623
  6. MULTIVITAMIN [Concomitant]
     Active Substance: VITAMINS
     Indication: SUPPLEMENTATION THERAPY
     Dates: start: 2005
  7. SPIRONOLACTONA [Concomitant]
     Indication: OEDEMA PERIPHERAL
     Dates: start: 20150917
  8. ATORVASTATIN [Concomitant]
     Active Substance: ATORVASTATIN
     Indication: HYPERLIPIDAEMIA
     Dates: start: 1985
  9. ASPIRIN. [Concomitant]
     Active Substance: ASPIRIN
     Indication: CORONARY ARTERY DISEASE
     Dates: start: 1999
  10. FINASTERIDE. [Concomitant]
     Active Substance: FINASTERIDE
     Indication: BENIGN PROSTATIC HYPERPLASIA
     Dates: start: 20150416
  11. GABAPENTIN. [Concomitant]
     Active Substance: GABAPENTIN
     Indication: SCIATICA
     Dates: start: 20150320
  12. TAFAMIDIS MEGLUMINE;PLACEBO [Concomitant]
     Active Substance: TAFAMIDIS MEGLUMINE
     Indication: CARDIOMYOPATHY
     Dates: start: 20140925
  13. WARFARIN [Suspect]
     Active Substance: WARFARIN
     Indication: ANTICOAGULANT THERAPY
     Dosage: 1.5 MILLIGRAM DAILY; 1.5 MG Q HS
     Route: 048
     Dates: start: 20151216, end: 20160112
  14. DOCUSATE [Concomitant]
     Active Substance: DOCUSATE
     Indication: CONSTIPATION
     Dates: start: 20150419
  15. SENNA [Concomitant]
     Active Substance: SENNA LEAF\SENNOSIDES\SENNOSIDES A AND B
     Indication: CONSTIPATION
     Dates: start: 20150419

REACTIONS (1)
  - Anticoagulation drug level above therapeutic [Not Recovered/Not Resolved]

NARRATIVE: CASE EVENT DATE: 20151216
